FAERS Safety Report 5681236-9 (Version None)
Quarter: 2008Q1

REPORT INFORMATION
  Report Type: 
  Country: None (occurrence: None)
  Receive Date: 20080326
  Receipt Date: 20070103
  Transmission Date: 20080703
  Serious: No
  Sender: FDA-Public Use
  Company Number: US-BAYER-US-2007-000175

PATIENT
  Sex: Female

DRUGS (2)
  1. MIRENA [Suspect]
     Route: 015
  2. ANTIDEPRESSANTS [Concomitant]
     Dates: start: 20050101, end: 20061101

REACTIONS (1)
  - MOOD ALTERED [None]
